FAERS Safety Report 9283024 (Version 1)
Quarter: 2013Q2

REPORT INFORMATION
  Report Type: Spontaneous
  Country: US (occurrence: US)
  Receive Date: 20130510
  Receipt Date: 20130510
  Transmission Date: 20140414
  Serious: No
  Sender: FDA-Public Use
  Company Number: US-GLAXOSMITHKLINE-A0973854A

PATIENT
  Age: 49 Year
  Sex: Female

DRUGS (5)
  1. TYKERB [Suspect]
     Indication: MALIGNANT NEOPLASM OF UNKNOWN PRIMARY SITE
     Dosage: 5TAB PER DAY
     Route: 048
     Dates: start: 20120411
  2. TOTAL PARENTERAL NUTRITION [Concomitant]
  3. EFFEXOR [Concomitant]
  4. LISINOPRIL [Concomitant]
  5. ATIVAN [Concomitant]

REACTIONS (6)
  - Nausea [Recovering/Resolving]
  - Diarrhoea [Recovering/Resolving]
  - Dehydration [Recovering/Resolving]
  - Dysuria [Recovering/Resolving]
  - Epistaxis [Recovering/Resolving]
  - Fatigue [Unknown]
